FAERS Safety Report 24719311 (Version 8)
Quarter: 2025Q3

REPORT INFORMATION
  Report Type: Report from Study
  Country: US (occurrence: US)
  Receive Date: 20241210
  Receipt Date: 20250819
  Transmission Date: 20251021
  Serious: Yes (Hospitalization, Other)
  Sender: ABBVIE
  Company Number: US-ABBVIE-6038146

PATIENT
  Age: 72 Year
  Sex: Female
  Weight: 73 kg

DRUGS (16)
  1. RINVOQ [Suspect]
     Active Substance: UPADACITINIB
     Indication: Rheumatoid arthritis
     Dosage: FORM STRENGTH: 15 MG
     Route: 048
     Dates: start: 20220906, end: 20241021
  2. LYRICA [Concomitant]
     Active Substance: PREGABALIN
     Indication: Product used for unknown indication
  3. LIOTHYRONINE [Concomitant]
     Active Substance: LIOTHYRONINE
     Indication: Product used for unknown indication
     Dates: start: 20180701
  4. Mirabegrona [Concomitant]
     Indication: Product used for unknown indication
  5. BACLOFEN [Concomitant]
     Active Substance: BACLOFEN
     Indication: Product used for unknown indication
  6. POTASSIUM CHLORIDE [Concomitant]
     Active Substance: POTASSIUM CHLORIDE
     Indication: Product used for unknown indication
     Dates: start: 20180101
  7. PRUCALOPRIDE [Concomitant]
     Active Substance: PRUCALOPRIDE
     Indication: Product used for unknown indication
  8. CLONIDINE [Concomitant]
     Active Substance: CLONIDINE
     Indication: Blood pressure management
  9. PANTOPRAZOLE [Concomitant]
     Active Substance: PANTOPRAZOLE
     Indication: Gastrointestinal disorder
     Dates: start: 20140801
  10. OXYCODONE [Concomitant]
     Active Substance: OXYCODONE
     Indication: Analgesic therapy
     Dates: start: 20200201
  11. TRAZODONE [Concomitant]
     Active Substance: TRAZODONE HYDROCHLORIDE
     Indication: Antidepressant therapy
     Dates: start: 20001001
  12. ALBUTEROL [Concomitant]
     Active Substance: ALBUTEROL
     Indication: Product used for unknown indication
  13. ESTRADIOL [Concomitant]
     Active Substance: ESTRADIOL
     Indication: Product used for unknown indication
     Dates: start: 20160501
  14. LINACLOTIDE [Concomitant]
     Active Substance: LINACLOTIDE
     Indication: Product used for unknown indication
  15. ESOMEPRAZOLE [Concomitant]
     Active Substance: ESOMEPRAZOLE
     Indication: Product used for unknown indication
     Dates: start: 20200201
  16. FOLIC ACID [Concomitant]
     Active Substance: FOLIC ACID
     Indication: Product used for unknown indication

REACTIONS (6)
  - Iron deficiency anaemia [Recovered/Resolved with Sequelae]
  - Hepatic cirrhosis [Recovered/Resolved]
  - Gastrointestinal haemorrhage [Recovered/Resolved]
  - Adverse drug reaction [Unknown]
  - Oedema peripheral [Unknown]
  - Microcytic anaemia [Recovered/Resolved]

NARRATIVE: CASE EVENT DATE: 20240601
